FAERS Safety Report 15535649 (Version 2)
Quarter: 2018Q4

REPORT INFORMATION
  Report Type: Report from Study
  Country: BR (occurrence: BR)
  Receive Date: 20181022
  Receipt Date: 20181101
  Transmission Date: 20190205
  Serious: Yes (Life-Threatening, Other)
  Sender: FDA-Public Use
  Company Number: BR-ROCHE-2199821

PATIENT
  Age: 27 Year
  Sex: Female
  Weight: 123 kg

DRUGS (1)
  1. XOLAIR [Suspect]
     Active Substance: OMALIZUMAB
     Indication: URTICARIA
     Route: 058
     Dates: start: 20180913

REACTIONS (10)
  - Headache [Unknown]
  - Obesity [Not Recovered/Not Resolved]
  - Skin plaque [Unknown]
  - Hypersensitivity [Not Recovered/Not Resolved]
  - Malaise [Unknown]
  - Gait disturbance [Unknown]
  - Bedridden [Unknown]
  - Vomiting [Unknown]
  - Labyrinthitis [Recovered/Resolved]
  - Sluggishness [Unknown]

NARRATIVE: CASE EVENT DATE: 20181001
